FAERS Safety Report 18154339 (Version 3)
Quarter: 2020Q4

REPORT INFORMATION
  Report Type: Spontaneous
  Country: US (occurrence: US)
  Receive Date: 20200817
  Receipt Date: 20201203
  Transmission Date: 20210113
  Serious: Yes (Hospitalization, Other)
  Sender: FDA-Public Use
  Company Number: US-ABBVIE-20K-163-3519419-00

PATIENT
  Sex: Female
  Weight: 49.94 kg

DRUGS (4)
  1. TEGRETOL [Suspect]
     Active Substance: CARBAMAZEPINE
     Indication: SEIZURE
     Route: 065
  2. DEPAKOTE [Suspect]
     Active Substance: DIVALPROEX SODIUM
     Dosage: FREQUENCY: 4 TO 5 DAYS
     Route: 065
  3. DILANTIN [Suspect]
     Active Substance: PHENYTOIN
     Indication: PRODUCT USED FOR UNKNOWN INDICATION
     Route: 065
  4. DEPAKOTE [Suspect]
     Active Substance: DIVALPROEX SODIUM
     Indication: SEIZURE
     Dosage: FREQUENCY: 2-3 DAYS
     Route: 065

REACTIONS (14)
  - Sensitive skin [Unknown]
  - Pleural effusion [Not Recovered/Not Resolved]
  - Hypophagia [Unknown]
  - Adverse drug reaction [Unknown]
  - Drug ineffective [Unknown]
  - Seizure [Not Recovered/Not Resolved]
  - Weight decreased [Unknown]
  - Erythema [Unknown]
  - Dermatitis contact [Unknown]
  - Poisoning [Unknown]
  - Skin exfoliation [Unknown]
  - Skin papilloma [Unknown]
  - Rash [Recovered/Resolved]
  - Pyrexia [Not Recovered/Not Resolved]

NARRATIVE: CASE EVENT DATE: 1984
